FAERS Safety Report 20148391 (Version 1)
Quarter: 2021Q4

REPORT INFORMATION
  Report Type: Spontaneous
  Country: US (occurrence: US)
  Receive Date: 20211204
  Receipt Date: 20211204
  Transmission Date: 20220304
  Serious: No
  Sender: FDA-Public Use
  Company Number: US-JNJFOC-20211136432

PATIENT
  Age: 66 Year
  Sex: Female
  Weight: 127.12 kg

DRUGS (9)
  1. XARELTO [Suspect]
     Active Substance: RIVAROXABAN
     Indication: Deep vein thrombosis
     Route: 048
     Dates: start: 20211114
  2. XARELTO [Suspect]
     Active Substance: RIVAROXABAN
     Indication: Thrombosis
  3. ERGOCALCIFEROL [Concomitant]
     Active Substance: ERGOCALCIFEROL
  4. LAXISOFT [Concomitant]
     Indication: Peripheral swelling
  5. LOSARTAN [Concomitant]
     Active Substance: LOSARTAN
  6. LIPITOR [Concomitant]
     Active Substance: ATORVASTATIN CALCIUM
     Indication: Cerebrovascular accident prophylaxis
  7. MELATONIN [Concomitant]
     Active Substance: MELATONIN
  8. CALCIUM [Concomitant]
     Active Substance: CALCIUM
  9. SUDAFED [Concomitant]
     Active Substance: PSEUDOEPHEDRINE HYDROCHLORIDE
     Indication: Asthma

REACTIONS (2)
  - Somnolence [Recovered/Resolved]
  - Dizziness [Not Recovered/Not Resolved]

NARRATIVE: CASE EVENT DATE: 20211114
